FAERS Safety Report 16931967 (Version 4)
Quarter: 2023Q2

REPORT INFORMATION
  Report Type: Report from Study
  Country: CA (occurrence: CA)
  Receive Date: 20191017
  Receipt Date: 20230508
  Transmission Date: 20230721
  Serious: Yes (Hospitalization, Other)
  Sender: FDA-Public Use
  Company Number: PHHY2013CA077935

PATIENT
  Age: 61 Year
  Sex: Female
  Weight: 88 kg

DRUGS (20)
  1. XOLAIR [Suspect]
     Active Substance: OMALIZUMAB
     Indication: Asthma
     Dosage: 300 MG, EVERY 4 WEEKS
     Route: 058
     Dates: start: 20130527
  2. XOLAIR [Suspect]
     Active Substance: OMALIZUMAB
     Dosage: UNK
     Route: 058
     Dates: start: 20140403
  3. XOLAIR [Suspect]
     Active Substance: OMALIZUMAB
     Dosage: 300 MG, EVERY 4 WEEKS
     Route: 058
     Dates: start: 20150130
  4. XOLAIR [Suspect]
     Active Substance: OMALIZUMAB
     Dosage: UNK
     Route: 058
     Dates: start: 20150305
  5. XOLAIR [Suspect]
     Active Substance: OMALIZUMAB
     Dosage: UNK
     Route: 058
     Dates: start: 20180103
  6. XOLAIR [Suspect]
     Active Substance: OMALIZUMAB
     Dosage: 300 MG, EVERY 4 WEEKS
     Route: 058
     Dates: start: 20180620
  7. XOLAIR [Suspect]
     Active Substance: OMALIZUMAB
     Dosage: 300 MG, EVERY 4 WEEKS
     Route: 058
     Dates: start: 20181107
  8. XOLAIR [Suspect]
     Active Substance: OMALIZUMAB
     Dosage: 300 MG, EVERY 4 WEEKS
     Route: 058
     Dates: start: 20181205
  9. XOLAIR [Suspect]
     Active Substance: OMALIZUMAB
     Dosage: 300 MG EVERY 4 WEEKS
     Route: 058
     Dates: start: 20190911
  10. XOLAIR [Suspect]
     Active Substance: OMALIZUMAB
     Dosage: 150 MG
     Route: 065
  11. XOLAIR [Suspect]
     Active Substance: OMALIZUMAB
     Dosage: 300 MG (EVERY 4 WEEKS)
     Route: 058
     Dates: start: 20200520
  12. CLARITHROMYCIN [Suspect]
     Active Substance: CLARITHROMYCIN
     Indication: Abdominal pain
     Dosage: 1 DOSAGE FORM, BID
     Route: 065
  13. CLARITHROMYCIN [Suspect]
     Active Substance: CLARITHROMYCIN
     Indication: Diverticulitis
     Dosage: 500 MG, BID, FOR 7 DAYS
     Route: 065
  14. CLARITHROMYCIN [Suspect]
     Active Substance: CLARITHROMYCIN
     Indication: Pneumonia
  15. CLARITHROMYCIN [Suspect]
     Active Substance: CLARITHROMYCIN
     Indication: Bronchitis
  16. ALVESCO [Suspect]
     Active Substance: CICLESONIDE
     Indication: Product used for unknown indication
     Dosage: UNK
     Route: 065
  17. ALVESCO [Suspect]
     Active Substance: CICLESONIDE
     Dosage: 2 DOSAGE FORM, PRN
  18. ADVAIR HFA [Concomitant]
     Active Substance: FLUTICASONE PROPIONATE\SALMETEROL XINAFOATE
     Indication: Product used for unknown indication
     Dosage: UNK
     Route: 065
  19. SPIRIVA [Concomitant]
     Active Substance: TIOTROPIUM BROMIDE MONOHYDRATE
     Indication: Product used for unknown indication
     Dosage: UNK
     Route: 065
  20. VENTOLIN [Concomitant]
     Active Substance: ALBUTEROL SULFATE
     Indication: Product used for unknown indication
     Dosage: UNK
     Route: 065

REACTIONS (36)
  - Pancreatitis [Recovered/Resolved]
  - Blood pressure systolic increased [Not Recovered/Not Resolved]
  - Gouty arthritis [Recovered/Resolved]
  - Cerebrovascular accident [Recovering/Resolving]
  - Coeliac disease [Unknown]
  - Pneumonia [Recovering/Resolving]
  - Syncope [Unknown]
  - Diverticulitis [Recovered/Resolved]
  - Hernia [Unknown]
  - Hernia pain [Unknown]
  - Swelling [Unknown]
  - Swelling face [Unknown]
  - Vision blurred [Unknown]
  - Respiratory disorder [Unknown]
  - Nervousness [Recovering/Resolving]
  - Hypocalcaemia [Unknown]
  - Vitamin D deficiency [Unknown]
  - Herpes zoster [Unknown]
  - Influenza [Unknown]
  - Eye irritation [Not Recovered/Not Resolved]
  - Allergy to animal [Unknown]
  - Sputum discoloured [Recovering/Resolving]
  - Productive cough [Recovering/Resolving]
  - Pyrexia [Recovering/Resolving]
  - Abdominal pain [Recovering/Resolving]
  - Rhinorrhoea [Unknown]
  - Bronchitis [Unknown]
  - Vomiting [Unknown]
  - Asthma [Recovering/Resolving]
  - Dyspnoea [Unknown]
  - Cough [Recovering/Resolving]
  - Fatigue [Recovering/Resolving]
  - Weight increased [Unknown]
  - Nasopharyngitis [Unknown]
  - Nasal congestion [Unknown]
  - Drug ineffective [Unknown]

NARRATIVE: CASE EVENT DATE: 20130601
